FAERS Safety Report 7490479-3 (Version None)
Quarter: 2011Q2

REPORT INFORMATION
  Report Type: 
  Country: None (occurrence: None)
  Receive Date: 20110519
  Receipt Date: 20110516
  Transmission Date: 20111010
  Serious: No
  Sender: FDA-Public Use
  Company Number: US-BAYER-2011-042459

PATIENT
  Sex: Female

DRUGS (3)
  1. YAZ [Suspect]
  2. DROSPIRENONE AND ETHINYL ESTRADIOL [Suspect]
  3. YASMIN [Suspect]

REACTIONS (2)
  - INJURY [None]
  - PAIN [None]
